FAERS Safety Report 10672720 (Version 1)
Quarter: 2014Q4

REPORT INFORMATION
  Report Type: Spontaneous
  Country: US (occurrence: US)
  Receive Date: 20141223
  Receipt Date: 20141223
  Transmission Date: 20150529
  Serious: Yes (Other)
  Sender: FDA-Public Use
  Company Number: US-RB PHARMACEUTICALS LIMITED-RB-74457-2014

PATIENT
  Sex: Female

DRUGS (6)
  1. NICOTINE (CIGARETTES) [Concomitant]
     Indication: NICOTINE DEPENDENCE
     Dosage: 10 CIGARETTES, DAILY
     Route: 055
  2. TRAZODONE [Concomitant]
     Active Substance: TRAZODONE HYDROCHLORIDE
     Indication: DEPRESSION
     Dosage: 200 MG, DAILY
     Route: 048
  3. SUBOXONE [Suspect]
     Active Substance: BUPRENORPHINE HYDROCHLORIDE\NALOXONE HYDROCHLORIDE
     Indication: DRUG DEPENDENCE
     Dosage: 24 MG, DAILY (DURATION: 16 MONTHS)
     Route: 060
     Dates: start: 201303, end: 201407
  4. XANAX [Concomitant]
     Active Substance: ALPRAZOLAM
     Indication: ANXIETY
     Dosage: 1 MG, TID
     Route: 048
  5. EFFEXOR [Concomitant]
     Active Substance: VENLAFAXINE HYDROCHLORIDE
     Indication: DEPRESSION
     Dosage: 225 MG, DAILY
     Route: 048
  6. PREMARIN [Concomitant]
     Active Substance: ESTROGENS, CONJUGATED
     Indication: MENOPAUSE
     Dosage: 0.9 MG, DAILY
     Route: 048

REACTIONS (1)
  - Lymphoma [Not Recovered/Not Resolved]

NARRATIVE: CASE EVENT DATE: 201407
